FAERS Safety Report 9702358 (Version 2)
Quarter: 2013Q4

REPORT INFORMATION
  Report Type: Report from Study
  Country: US (occurrence: US)
  Receive Date: 20131121
  Receipt Date: 20131121
  Transmission Date: 20140711
  Serious: Yes (Other)
  Sender: FDA-Public Use
  Company Number: US-ABBVIE-09P-163-0560367-00

PATIENT
  Age: 46 Year
  Sex: Female
  Weight: 48.58 kg

DRUGS (12)
  1. HUMIRA [Suspect]
     Indication: CROHN^S DISEASE
  2. HUMIRA 40 MG/ 0.8 ML PRE-FILLED SYRINGE [Suspect]
     Indication: CROHN^S DISEASE
     Dates: start: 2006
  3. NORVASC [Concomitant]
     Indication: HYPERTENSION
  4. SINGULAIR [Concomitant]
     Indication: ASTHMA
  5. VICODIN [Concomitant]
     Indication: PAIN
     Dosage: EXTENDED RELEASE
  6. ALBUTEROL [Concomitant]
     Indication: ASTHMA
  7. FIORICET [Concomitant]
     Indication: HEADACHE
  8. ROPINIROLE [Concomitant]
     Indication: RESTLESS LEGS SYNDROME
  9. IMODIUM [Concomitant]
     Indication: FREQUENT BOWEL MOVEMENTS
  10. CALCIUM [Concomitant]
     Indication: VITAMIN SUPPLEMENTATION
  11. ACIDOPHILUS [Concomitant]
     Indication: VITAMIN SUPPLEMENTATION
  12. MULTIVITAMIN [Concomitant]
     Indication: VITAMIN SUPPLEMENTATION

REACTIONS (13)
  - Menorrhagia [Recovered/Resolved]
  - Hysterectomy [Recovered/Resolved]
  - Tooth infection [Recovered/Resolved]
  - Hand fracture [Recovering/Resolving]
  - Kidney infection [Not Recovered/Not Resolved]
  - Urinary tract infection [Recovered/Resolved]
  - Injection site bruising [Recovered/Resolved]
  - Urinary tract infection [Not Recovered/Not Resolved]
  - Infection [Not Recovered/Not Resolved]
  - Fall [Recovering/Resolving]
  - Rib fracture [Recovering/Resolving]
  - Blood pressure increased [Unknown]
  - Stress [Unknown]
